FAERS Safety Report 7473111-4 (Version None)
Quarter: 2011Q2

REPORT INFORMATION
  Report Type: 
  Country: None (occurrence: None)
  Receive Date: 20110511
  Receipt Date: 20110505
  Transmission Date: 20111010
  Serious: Yes (Death, Other)
  Sender: FDA-Public Use
  Company Number: US-ROCHE-775664

PATIENT
  Sex: Female

DRUGS (8)
  1. LOMOTIL (LOPERAMIDE) [Concomitant]
  2. BEVACIZUMAB [Suspect]
     Route: 042
     Dates: start: 20110307, end: 20110421
  3. MAGIC MOUTHWASH (ALUMINUM HYDROXIDE/DIPHENHYDRAMINE/HYDROCORTISONE/LI+ [Concomitant]
  4. VICODIN [Concomitant]
  5. CISPLATIN [Suspect]
     Route: 042
     Dates: start: 20110307, end: 20110421
  6. TOPOTECAN [Suspect]
     Route: 042
     Dates: start: 20110307, end: 20110421
  7. FLAGYL [Concomitant]
  8. POTASSIUM CHLORIDE [Concomitant]

REACTIONS (6)
  - DEATH [None]
  - DIARRHOEA [None]
  - FATIGUE [None]
  - MUCOSAL INFLAMMATION [None]
  - VOMITING [None]
  - NAUSEA [None]
